FAERS Safety Report 12233932 (Version 10)
Quarter: 2018Q3

REPORT INFORMATION
  Report Type: Report from Study
  Country: CA (occurrence: CA)
  Receive Date: 20160404
  Receipt Date: 20180917
  Transmission Date: 20181010
  Serious: Yes (Other)
  Sender: FDA-Public Use
  Company Number: CA-ROCHE-1535450

PATIENT
  Age: 65 Year
  Sex: Male
  Weight: 110 kg

DRUGS (15)
  1. ACTEMRA [Suspect]
     Active Substance: TOCILIZUMAB
     Route: 042
     Dates: start: 20150930
  2. ACTEMRA [Suspect]
     Active Substance: TOCILIZUMAB
     Route: 042
     Dates: start: 20170613
  3. ACTEMRA [Suspect]
     Active Substance: TOCILIZUMAB
     Route: 042
  4. GABAPENTIN. [Concomitant]
     Active Substance: GABAPENTIN
  5. ACTEMRA [Suspect]
     Active Substance: TOCILIZUMAB
     Route: 042
     Dates: start: 20150709
  6. ACTEMRA [Suspect]
     Active Substance: TOCILIZUMAB
     Route: 042
     Dates: start: 20171227
  7. LIPITOR [Concomitant]
     Active Substance: ATORVASTATIN CALCIUM
  8. NORTRIPTYLINE [Concomitant]
     Active Substance: NORTRIPTYLINE
  9. RANITIDIN [Concomitant]
     Active Substance: RANITIDINE HYDROCHLORIDE
  10. ACTEMRA [Suspect]
     Active Substance: TOCILIZUMAB
     Indication: RHEUMATOID ARTHRITIS
     Route: 042
     Dates: start: 20140916
  11. ACTEMRA [Suspect]
     Active Substance: TOCILIZUMAB
     Route: 042
     Dates: start: 20180123
  12. METHOTREXATE. [Concomitant]
     Active Substance: METHOTREXATE
  13. ACTEMRA [Suspect]
     Active Substance: TOCILIZUMAB
     Route: 042
     Dates: start: 20141015
  14. FLOMAX [Concomitant]
     Active Substance: TAMSULOSIN HYDROCHLORIDE
  15. VALSARTAN. [Concomitant]
     Active Substance: VALSARTAN

REACTIONS (16)
  - Body temperature decreased [Unknown]
  - Weight increased [Not Recovered/Not Resolved]
  - Heart rate increased [Unknown]
  - Tooth disorder [Unknown]
  - Musculoskeletal disorder [Unknown]
  - Post procedural infection [Not Recovered/Not Resolved]
  - Ecchymosis [Not Recovered/Not Resolved]
  - Infusion related reaction [Recovered/Resolved]
  - Swelling face [Not Recovered/Not Resolved]
  - Dysgeusia [Not Recovered/Not Resolved]
  - Oxygen saturation decreased [Unknown]
  - Disability assessment scale score increased [Not Recovered/Not Resolved]
  - Blood pressure increased [Unknown]
  - White blood cell count decreased [Not Recovered/Not Resolved]
  - Tenderness [Not Recovered/Not Resolved]
  - Joint swelling [Unknown]

NARRATIVE: CASE EVENT DATE: 20150107
